FAERS Safety Report 8618621-9 (Version None)
Quarter: 2012Q3

REPORT INFORMATION
  Report Type: 
  Country: None (occurrence: None)
  Receive Date: 20120814
  Receipt Date: 20120814
  Transmission Date: 20120928
  Serious: Yes (Life-Threatening, Hospitalization)
  Sender: FDA-Public Use
  Company Number: None

PATIENT
  Sex: Male
  Weight: 119.6 kg

DRUGS (1)
  1. LINEZOLID [Suspect]
     Indication: PLEURAL EFFUSION
     Dosage: 600MG BID PO
     Route: 048
     Dates: start: 20120522, end: 20120615

REACTIONS (1)
  - PANCYTOPENIA [None]
